FAERS Safety Report 17012684 (Version 1)
Quarter: 2019Q4

REPORT INFORMATION
  Report Type: Spontaneous
  Country: DE (occurrence: DE)
  Receive Date: 20191109
  Receipt Date: 20191109
  Transmission Date: 20200122
  Serious: Yes (Other)
  Sender: FDA-Public Use
  Company Number: DE-DRREDDYS-USA/GER/19/0115988

PATIENT
  Age: 41 Year
  Sex: Male

DRUGS (3)
  1. DONEPEZIL HYDROCHLORIDE TABLETS [Suspect]
     Active Substance: DONEPEZIL HYDROCHLORIDE
     Indication: DEMENTIA ALZHEIMER^S TYPE
     Route: 065
  2. MEMANTINE HYDROCHLORIDE. [Concomitant]
     Active Substance: MEMANTINE HYDROCHLORIDE
     Indication: DEMENTIA ALZHEIMER^S TYPE
  3. DONEPEZIL HYDROCHLORIDE TABLETS [Suspect]
     Active Substance: DONEPEZIL HYDROCHLORIDE
     Route: 065

REACTIONS (1)
  - Pleurothotonus [Recovered/Resolved]
